FAERS Safety Report 25089183 (Version 1)
Quarter: 2025Q1

REPORT INFORMATION
  Report Type: Spontaneous
  Country: US (occurrence: None)
  Receive Date: 20250316
  Receipt Date: 20250316
  Transmission Date: 20250409
  Serious: Yes (Other)
  Sender: FDA-CTU
  Company Number: None

PATIENT
  Age: 66 Year
  Sex: Female
  Weight: 74.25 kg

DRUGS (19)
  1. OZEMPIC [Suspect]
     Active Substance: SEMAGLUTIDE
     Indication: Glycosylated haemoglobin increased
     Route: 058
  2. EFFEXOR [Concomitant]
     Active Substance: VENLAFAXINE HYDROCHLORIDE
  3. LIPITOR [Concomitant]
     Active Substance: ATORVASTATIN CALCIUM
  4. XARELTO [Concomitant]
     Active Substance: RIVAROXABAN
  5. METOPROLOL [Concomitant]
     Active Substance: METOPROLOL
  6. HCL [Concomitant]
  7. CYTOMEL [Concomitant]
     Active Substance: LIOTHYRONINE SODIUM
  8. SYNTHROID [Concomitant]
     Active Substance: LEVOTHYROXINE SODIUM
  9. VALACYCLOVIR [Concomitant]
     Active Substance: VALACYCLOVIR HYDROCHLORIDE
  10. PRIVIGEN [Concomitant]
     Active Substance: HUMAN IMMUNOGLOBULIN G
  11. Premed Benadryl [Concomitant]
  12. Premed Dexamethasone Altace [Concomitant]
  13. METFORMIN [Concomitant]
     Active Substance: METFORMIN HYDROCHLORIDE
  14. OXYCONTIN [Concomitant]
     Active Substance: OXYCODONE HYDROCHLORIDE
  15. FENTANYL TRANSDERMAL SYSTEM [Concomitant]
     Active Substance: FENTANYL
  16. AMBIEN [Concomitant]
     Active Substance: ZOLPIDEM TARTRATE
  17. OZEMPIC [Concomitant]
     Active Substance: SEMAGLUTIDE
  18. Centrum Vitamin [Concomitant]
  19. VITAMIN D [Concomitant]
     Active Substance: VITAMIN D NOS

REACTIONS (2)
  - Anxiety [None]
  - Depression [None]

NARRATIVE: CASE EVENT DATE: 20250221
